FAERS Safety Report 10523156 (Version 2)
Quarter: 2014Q4

REPORT INFORMATION
  Report Type: Report from Study
  Country: US (occurrence: US)
  Receive Date: 20141016
  Receipt Date: 20141024
  Transmission Date: 20150528
  Serious: Yes (Hospitalization)
  Sender: FDA-Public Use
  Company Number: US-US-EMD SERONO, INC.-7327725

PATIENT
  Age: 63 Year
  Sex: Female

DRUGS (1)
  1. REBIF [Suspect]
     Active Substance: INTERFERON BETA-1A
     Indication: MULTIPLE SCLEROSIS
     Route: 058
     Dates: start: 20111018, end: 20141011

REACTIONS (6)
  - Multiple sclerosis relapse [Not Recovered/Not Resolved]
  - Breast cancer female [Unknown]
  - Renal disorder [Recovered/Resolved]
  - Splenomegaly [Not Recovered/Not Resolved]
  - Anaemia [Not Recovered/Not Resolved]
  - Blood urine present [Unknown]

NARRATIVE: CASE EVENT DATE: 201409
